FAERS Safety Report 6954774-6 (Version None)
Quarter: 2010Q3

REPORT INFORMATION
  Report Type: 
  Country: None (occurrence: None)
  Receive Date: 20100830
  Receipt Date: 20100820
  Transmission Date: 20110219
  Serious: Yes (Hospitalization)
  Sender: FDA-Public Use
  Company Number: 2008BI001393

PATIENT
  Sex: Female

DRUGS (2)
  1. AVONEX [Suspect]
     Indication: MULTIPLE SCLEROSIS
     Route: 030
     Dates: start: 19970328
  2. AVONEX [Suspect]
     Route: 030

REACTIONS (15)
  - CALCULUS BLADDER [None]
  - CYSTITIS [None]
  - DECREASED APPETITE [None]
  - DECREASED IMMUNE RESPONSIVENESS [None]
  - DECUBITUS ULCER [None]
  - DEPRESSION [None]
  - DIARRHOEA [None]
  - FATIGUE [None]
  - MULTIPLE SCLEROSIS RELAPSE [None]
  - OSTEOMYELITIS [None]
  - PNEUMONIA [None]
  - PYREXIA [None]
  - URTICARIA [None]
  - WEIGHT GAIN POOR [None]
  - WOUND INFECTION STAPHYLOCOCCAL [None]
